FAERS Safety Report 6686712-8 (Version None)
Quarter: 2010Q2

REPORT INFORMATION
  Report Type: 
  Country: None (occurrence: None)
  Receive Date: 20100419
  Receipt Date: 20100413
  Transmission Date: 20101027
  Serious: Yes (Life-Threatening)
  Sender: FDA-Public Use
  Company Number: TR-CELGENEUS-161-C5013-10040963

PATIENT
  Sex: Female
  Weight: 68 kg

DRUGS (4)
  1. CC-5013 [Suspect]
     Route: 048
     Dates: start: 20100329, end: 20100409
  2. VIDAZA [Concomitant]
     Route: 058
     Dates: start: 20100201, end: 20100308
  3. VESANOID [Concomitant]
     Dosage: 1X6
     Route: 065
     Dates: start: 20100201, end: 20100308
  4. DEPAKENE [Concomitant]
     Dosage: 2X1
     Route: 065
     Dates: start: 20100201, end: 20100308

REACTIONS (1)
  - CEREBRAL INFARCTION [None]
